FAERS Safety Report 4437566-1 (Version None)
Quarter: 2004Q3

REPORT INFORMATION
  Report Type: 
  Country: None (occurrence: None)
  Receive Date: 20040830
  Receipt Date: 20040830
  Transmission Date: 20050211
  Serious: Yes (Hospitalization)
  Sender: FDA-Public Use
  Company Number: None

PATIENT
  Age: 58 Year
  Sex: Male
  Weight: 65.3 kg

DRUGS (4)
  1. LISINOPRIL [Suspect]
     Dosage: 30 MG QD BY MOUTH
     Route: 048
     Dates: start: 20040312, end: 20040606
  2. METOPROLOL TARTRATE [Concomitant]
  3. ALBUTEROL [Concomitant]
  4. RANITIDINE 50,G/50 ML HALF NS [Concomitant]

REACTIONS (1)
  - ANGIONEUROTIC OEDEMA [None]
